FAERS Safety Report 10260852 (Version 2)
Quarter: 2014Q3

REPORT INFORMATION
  Report Type: Spontaneous
  Country: US (occurrence: US)
  Receive Date: 20140626
  Receipt Date: 20140902
  Transmission Date: 20150326
  Serious: Yes (Hospitalization)
  Sender: FDA-Public Use
  Company Number: US-ASTRAZENECA-2014SE45366

PATIENT
  Age: 84 Year
  Sex: Female
  Weight: 89.4 kg

DRUGS (4)
  1. ENALAPRIL [Concomitant]
     Active Substance: ENALAPRIL
  2. BRILINTA [Suspect]
     Active Substance: TICAGRELOR
     Indication: ACUTE MYOCARDIAL INFARCTION
     Route: 048
     Dates: start: 20140421, end: 20140531
  3. STEROIDS [Concomitant]
     Active Substance: UNSPECIFIED INGREDIENT
  4. ANTIHISTAMINES [Concomitant]
     Active Substance: ANTIHISTAMINES NOS

REACTIONS (9)
  - Respiratory failure [Unknown]
  - Hypotension [Unknown]
  - Angioedema [Recovered/Resolved]
  - Diarrhoea [Unknown]
  - Ventricular tachycardia [Recovered/Resolved]
  - Dysphonia [Unknown]
  - Iron deficiency anaemia [Unknown]
  - Stridor [Recovering/Resolving]
  - Dyspnoea [Unknown]

NARRATIVE: CASE EVENT DATE: 20140531
